FAERS Safety Report 4299060-0 (Version None)
Quarter: 2004Q1

REPORT INFORMATION
  Report Type: 
  Country: None (occurrence: None)
  Receive Date: 20040218
  Receipt Date: 20040203
  Transmission Date: 20041129
  Serious: Yes (Hospitalization)
  Sender: FDA-Public Use
  Company Number: FLUV00304000169

PATIENT
  Age: 26 Year
  Sex: Male

DRUGS (2)
  1. LUVOX [Suspect]
     Indication: DEPRESSION
     Dosage: 75 MG DAILY PO
     Route: 048
     Dates: start: 20031212, end: 20040109
  2. DIAZEPAM [Concomitant]

REACTIONS (9)
  - AGGRESSION [None]
  - ALCOHOL WITHDRAWAL SYNDROME [None]
  - BLOOD PRESSURE INCREASED [None]
  - DELIRIUM [None]
  - HAEMATOCRIT DECREASED [None]
  - HAEMOGLOBIN DECREASED [None]
  - HYPERKINESIA [None]
  - MANIA [None]
  - RED BLOOD CELL COUNT DECREASED [None]
